FAERS Safety Report 16654059 (Version 2)
Quarter: 2019Q3

REPORT INFORMATION
  Report Type: Spontaneous
  Country: BR (occurrence: BR)
  Receive Date: 20190731
  Receipt Date: 20190806
  Transmission Date: 20191004
  Serious: Yes (Hospitalization)
  Sender: FDA-Public Use
  Company Number: BR-EXELIXIS-CABO-19022829

PATIENT
  Sex: Female

DRUGS (1)
  1. CABOMETYX [Suspect]
     Active Substance: CABOZANTINIB S-MALATE
     Indication: RENAL CANCER
     Dosage: 60 MG, UNK
     Dates: start: 20190509

REACTIONS (6)
  - Febrile neutropenia [Recovered/Resolved]
  - Fatigue [Recovered/Resolved]
  - Infection [Recovered/Resolved]
  - Feeding disorder [Recovered/Resolved]
  - Mucosal pain [Recovered/Resolved]
  - Dyschezia [Recovered/Resolved]
